FAERS Safety Report 12504801 (Version 3)
Quarter: 2016Q3

REPORT INFORMATION
  Report Type: Spontaneous
  Country: US (occurrence: US)
  Receive Date: 20160628
  Receipt Date: 20160720
  Transmission Date: 20161109
  Serious: No
  Sender: FDA-Public Use
  Company Number: US-ACTELION-A-US2016-138326

PATIENT
  Age: 67 Year
  Sex: Female

DRUGS (19)
  1. METOPROLOL. [Concomitant]
     Active Substance: METOPROLOL
  2. TRAVATAN Z [Concomitant]
     Active Substance: TRAVOPROST
  3. RESTASIS [Concomitant]
     Active Substance: CYCLOSPORINE
  4. SILDENAFIL. [Suspect]
     Active Substance: SILDENAFIL
     Indication: PRODUCT USED FOR UNKNOWN INDICATION
     Route: 065
  5. DIGOXIN. [Concomitant]
     Active Substance: DIGOXIN
  6. ADCIRCA [Suspect]
     Active Substance: TADALAFIL
     Indication: PRODUCT USED FOR UNKNOWN INDICATION
     Route: 065
  7. TORSEMIDE. [Concomitant]
     Active Substance: TORSEMIDE
  8. CYCLOBENZAPRINE [Concomitant]
     Active Substance: CYCLOBENZAPRINE
  9. REMODULIN [Suspect]
     Active Substance: TREPROSTINIL
     Indication: PULMONARY ARTERIAL HYPERTENSION
     Dosage: 0.010 UNK, UNK
     Route: 058
     Dates: start: 20160415, end: 20160616
  10. UPTRAVI [Suspect]
     Active Substance: SELEXIPAG
     Indication: PULMONARY ARTERIAL HYPERTENSION
     Dosage: UNK
     Route: 048
     Dates: start: 20160613
  11. NORVASC [Concomitant]
     Active Substance: AMLODIPINE BESYLATE
  12. FENOFIBRATE. [Concomitant]
     Active Substance: FENOFIBRATE
  13. DEPO-MEDROL [Concomitant]
     Active Substance: METHYLPREDNISOLONE ACETATE
  14. PROTONIX [Concomitant]
     Active Substance: PANTOPRAZOLE SODIUM
  15. GLIPIZIDE. [Concomitant]
     Active Substance: GLIPIZIDE
  16. PRILOSEC [Concomitant]
     Active Substance: OMEPRAZOLE MAGNESIUM
  17. KLOR-CON [Concomitant]
     Active Substance: POTASSIUM CHLORIDE
  18. DIAZEPAM. [Concomitant]
     Active Substance: DIAZEPAM
  19. AMBRISENTAN [Suspect]
     Active Substance: AMBRISENTAN
     Indication: PULMONARY ARTERIAL HYPERTENSION
     Dosage: 5 MCG, QD
     Route: 048
     Dates: start: 20160607

REACTIONS (2)
  - Myalgia [Unknown]
  - Headache [Unknown]
